FAERS Safety Report 9513583 (Version 1)
Quarter: 2013Q3

REPORT INFORMATION
  Report Type: Spontaneous
  Country: CA (occurrence: CA)
  Receive Date: 20130910
  Receipt Date: 20130910
  Transmission Date: 20140515
  Serious: Yes (Hospitalization)
  Sender: FDA-Public Use
  Company Number: CA-GLAXOSMITHKLINE-A1037374A

PATIENT
  Age: 72 Year
  Sex: Male

DRUGS (3)
  1. TYKERB [Suspect]
     Indication: GASTRIC CANCER
     Dosage: 1000MCG SEE DOSAGE TEXT
     Route: 065
     Dates: start: 20120920, end: 20130726
  2. TAXOL [Suspect]
     Indication: PRODUCT USED FOR UNKNOWN INDICATION
     Route: 065
  3. HERCEPTIN [Suspect]
     Indication: PRODUCT USED FOR UNKNOWN INDICATION
     Route: 065

REACTIONS (6)
  - Pseudomembranous colitis [Recovering/Resolving]
  - Renal impairment [Unknown]
  - Diarrhoea [Unknown]
  - Immunodeficiency [Unknown]
  - Pyrexia [Unknown]
  - Off label use [Unknown]
